FAERS Safety Report 12276625 (Version 1)
Quarter: 2016Q2

REPORT INFORMATION
  Report Type: Spontaneous
  Country: US (occurrence: None)
  Receive Date: 20160415
  Receipt Date: 20160415
  Transmission Date: 20160815
  Serious: No
  Sender: FDA-Public Use
  Company Number: None

PATIENT
  Age: 54 Year
  Sex: Male
  Weight: 106.6 kg

DRUGS (4)
  1. ASPIRIN. [Concomitant]
     Active Substance: ASPIRIN
  2. VALSARTAN 40 MG TABLET, 40 MG MYLAN [Suspect]
     Active Substance: VALSARTAN
     Indication: HYPERTENSION
     Dosage: 30 TABLET(S) ONCE A DAY TAKEN BY MOUTH
     Route: 048
     Dates: start: 20160408, end: 20160414
  3. TYLENOL [Concomitant]
     Active Substance: ACETAMINOPHEN
  4. ADVIL [Concomitant]
     Active Substance: IBUPROFEN

REACTIONS (3)
  - Adverse drug reaction [None]
  - Product substitution issue [None]
  - Rash [None]

NARRATIVE: CASE EVENT DATE: 20160410
